FAERS Safety Report 13285055 (Version 1)
Quarter: 2017Q1

REPORT INFORMATION
  Report Type: Spontaneous
  Country: US (occurrence: US)
  Receive Date: 20170301
  Receipt Date: 20170301
  Transmission Date: 20170428
  Serious: Yes (Other)
  Sender: FDA-Public Use
  Company Number: None

PATIENT
  Age: 83 Year
  Sex: Male
  Weight: 74.25 kg

DRUGS (16)
  1. LOSARTAN 25MG [Concomitant]
     Active Substance: LOSARTAN
  2. KCL [Concomitant]
     Active Substance: POTASSIUM CHLORIDE
  3. MEDTRONIC PACEMAKER [Concomitant]
  4. MULTIVITAMIN [Concomitant]
     Active Substance: VITAMINS
  5. TRAZADONE 50MG [Concomitant]
  6. GABAPENTIN CAPSULES, USP 300 MG [Suspect]
     Active Substance: GABAPENTIN
     Indication: NEUROPATHY PERIPHERAL
     Dosage: ?          QUANTITY:1 TABLET(S);?
     Route: 048
     Dates: start: 20160915
  7. OMEGA 3 [Concomitant]
     Active Substance: OMEGA-3 FATTY ACIDS
  8. STOOL SOFTENER (DOCUSATE) [Concomitant]
     Active Substance: DOCUSATE
  9. ALEVE [Concomitant]
     Active Substance: NAPROXEN SODIUM
  10. AMLODIPINE BESYLATE 5MG [Concomitant]
     Active Substance: AMLODIPINE BESYLATE
  11. ASA [Concomitant]
     Active Substance: ASPIRIN
  12. OMEGA 6 FATTY ACIDS [Concomitant]
     Active Substance: OMEGA-6 FATTY ACIDS
  13. OMEGA 9 FATTY ACIDS SOFTGELS [Concomitant]
  14. LUTEIN/ZEAXANTHIN [Concomitant]
  15. METOPROLOL TARTRATE 25MG [Concomitant]
     Active Substance: METOPROLOL TARTRATE
  16. SERTRALINE 50MG. [Concomitant]

REACTIONS (1)
  - Salivary hypersecretion [None]

NARRATIVE: CASE EVENT DATE: 20161130
